FAERS Safety Report 6416978-0 (Version None)
Quarter: 2009Q4

REPORT INFORMATION
  Report Type: 
  Country: None (occurrence: None)
  Receive Date: 20091027
  Receipt Date: 20090223
  Transmission Date: 20100525
  Serious: No
  Sender: FDA-Public Use
  Company Number: US-ALLERGAN-0902388US

PATIENT
  Age: 53 Year
  Sex: Female

DRUGS (2)
  1. ALPHAGAN P [Suspect]
     Indication: PROPHYLAXIS
     Dosage: 1 GTT, SINGLE
     Route: 047
     Dates: start: 20090215, end: 20080215
  2. SYNTHROID [Concomitant]
     Indication: HYPOTHYROIDISM

REACTIONS (2)
  - EYE PAIN [None]
  - OCULAR HYPERAEMIA [None]
